FAERS Safety Report 8022778-0 (Version None)
Quarter: 2012Q1

REPORT INFORMATION
  Report Type: 
  Country: None (occurrence: None)
  Receive Date: 20120104
  Receipt Date: 20111223
  Transmission Date: 20120608
  Serious: Yes (Hospitalization)
  Sender: FDA-Public Use
  Company Number: GB-MERCK-1112GBR00084

PATIENT

DRUGS (1)
  1. JANUVIA [Suspect]
     Route: 048

REACTIONS (3)
  - OVERDOSE [None]
  - ADVERSE EVENT [None]
  - INAPPROPRIATE SCHEDULE OF DRUG ADMINISTRATION [None]
